FAERS Safety Report 5767758-0 (Version None)
Quarter: 2008Q2

REPORT INFORMATION
  Report Type: 
  Country: None (occurrence: None)
  Receive Date: 20080606
  Receipt Date: 20080525
  Transmission Date: 20081010
  Serious: Yes (Other)
  Sender: FDA-Public Use
  Company Number: 2008-GWUS-0354

PATIENT

DRUGS (1)
  1. FLECAINIDE ACETATE [Suspect]
     Indication: ARRHYTHMIA PROPHYLAXIS

REACTIONS (1)
  - BRUGADA SYNDROME [None]
